FAERS Safety Report 25131818 (Version 2)
Quarter: 2025Q3

REPORT INFORMATION
  Report Type: Spontaneous
  Country: US (occurrence: US)
  Receive Date: 20250327
  Receipt Date: 20250809
  Transmission Date: 20251021
  Serious: Yes (Hospitalization, Other)
  Sender: ALEXION PHARMACEUTICALS
  Company Number: US-ASTRAZENECA-202502GLO027864US

PATIENT
  Age: 47 Year
  Sex: Female

DRUGS (47)
  1. SAPHNELO [Suspect]
     Active Substance: ANIFROLUMAB-FNIA
     Indication: Product used for unknown indication
     Dosage: 300 MG/2 ML, Q4W
  2. PROLIA [Suspect]
     Active Substance: DENOSUMAB
     Indication: Osteoporosis
  3. PROLIA [Suspect]
     Active Substance: DENOSUMAB
     Route: 065
  4. PROLIA [Suspect]
     Active Substance: DENOSUMAB
     Route: 065
  5. PREDNISONE [Suspect]
     Active Substance: PREDNISONE
     Indication: Product used for unknown indication
     Dosage: 5 MILLIGRAM, QD
     Route: 065
     Dates: start: 20221122
  6. BENLYSTA [Suspect]
     Active Substance: BELIMUMAB
     Indication: Product used for unknown indication
     Route: 065
  7. ENBREL [Suspect]
     Active Substance: ETANERCEPT
     Indication: Product used for unknown indication
     Route: 065
  8. OTEZLA [Suspect]
     Active Substance: APREMILAST
     Indication: Behcet^s syndrome
     Dosage: 30 MILLIGRAM, BID
     Dates: start: 202105
  9. BENADRYL [Concomitant]
     Active Substance: DIPHENHYDRAMINE HYDROCHLORIDE
     Indication: Product used for unknown indication
     Route: 065
  10. TEMAZEPAM [Concomitant]
     Active Substance: TEMAZEPAM
     Route: 065
  11. MAXITROL [Concomitant]
     Active Substance: DEXAMETHASONE\NEOMYCIN SULFATE\POLYMYXIN B SULFATE
  12. PANTOPRAZOLE [Concomitant]
     Active Substance: PANTOPRAZOLE
     Route: 065
  13. MEDROL [Concomitant]
     Active Substance: METHYLPREDNISOLONE
     Route: 065
  14. MEDROL [Concomitant]
     Active Substance: METHYLPREDNISOLONE
     Route: 065
  15. VITAMIN D2 [Concomitant]
     Active Substance: ERGOCALCIFEROL
     Route: 065
  16. FAMCICLOVIR [Concomitant]
     Active Substance: FAMCICLOVIR
     Route: 065
  17. SPIRONOLACTONE [Concomitant]
     Active Substance: SPIRONOLACTONE
     Route: 065
  18. ALBUTEROL SULFATE [Concomitant]
     Active Substance: ALBUTEROL SULFATE
     Route: 065
  19. PHENTERMINE [Concomitant]
     Active Substance: PHENTERMINE
     Route: 065
  20. NURTEC ODT [Concomitant]
     Active Substance: RIMEGEPANT SULFATE
     Route: 065
  21. TYLENOL [Concomitant]
     Active Substance: ACETAMINOPHEN
     Route: 065
  22. ZOFRAN [Concomitant]
     Active Substance: ONDANSETRON HYDROCHLORIDE
     Route: 065
  23. MELOXICAM [Concomitant]
     Active Substance: MELOXICAM
     Route: 065
  24. FLEXERIL [Concomitant]
     Active Substance: CYCLOBENZAPRINE HYDROCHLORIDE
     Route: 065
  25. MELATONIN [Concomitant]
     Active Substance: MELATONIN
     Route: 065
  26. MODAFINIL [Concomitant]
     Active Substance: MODAFINIL
     Route: 065
  27. SPRIX [Concomitant]
     Active Substance: KETOROLAC TROMETHAMINE
     Route: 065
  28. BACLOFEN [Concomitant]
     Active Substance: BACLOFEN
     Route: 065
  29. MONTELUKAST [Concomitant]
     Active Substance: MONTELUKAST
     Route: 065
  30. FAMVIR [Concomitant]
     Active Substance: FAMCICLOVIR
     Route: 065
  31. IMVEXXY [Concomitant]
     Active Substance: ESTRADIOL
     Route: 065
  32. TIZANIDINE [Concomitant]
     Active Substance: TIZANIDINE
     Route: 065
  33. ROBAXIN [Concomitant]
     Active Substance: METHOCARBAMOL
     Route: 065
  34. SUNOSI [Concomitant]
     Active Substance: SOLRIAMFETOL
     Route: 065
  35. PHENDIMETRAZINE [Concomitant]
     Active Substance: PHENDIMETRAZINE
     Route: 065
  36. ZAFIRLUKAST [Concomitant]
     Active Substance: ZAFIRLUKAST
     Route: 065
  37. DAYVIGO [Concomitant]
     Active Substance: LEMBOREXANT
     Route: 065
  38. Triptan [Concomitant]
     Route: 065
  39. PROTONIX [Concomitant]
     Active Substance: PANTOPRAZOLE SODIUM
     Route: 065
  40. UBRELVY [Concomitant]
     Active Substance: UBROGEPANT
     Route: 065
  41. COLCHICINE [Concomitant]
     Active Substance: COLCHICINE
     Route: 065
  42. QUVIVIQ [Concomitant]
     Active Substance: DARIDOREXANT
     Route: 065
  43. Aza [Concomitant]
     Route: 065
  44. METHOTREXATE SODIUM [Concomitant]
     Active Substance: METHOTREXATE SODIUM
     Route: 065
  45. CELLCEPT [Concomitant]
     Active Substance: MYCOPHENOLATE MOFETIL
     Route: 065
  46. PLAQUENIL [Concomitant]
     Active Substance: HYDROXYCHLOROQUINE SULFATE
     Route: 065
  47. ARAVA [Concomitant]
     Active Substance: LEFLUNOMIDE
     Route: 065

REACTIONS (67)
  - Nephrolithiasis [Unknown]
  - Systemic lupus erythematosus [Unknown]
  - Cardiomyopathy [Unknown]
  - Sjogren^s syndrome [Unknown]
  - Enchondromatosis [Unknown]
  - Muscle hypertrophy [Unknown]
  - Hyperparathyroidism [Unknown]
  - Pleurisy [Unknown]
  - Ketonuria [Unknown]
  - Nausea [Unknown]
  - Bronchospasm [Unknown]
  - Myalgia [Unknown]
  - Lymphadenopathy [Unknown]
  - Rhinorrhoea [Unknown]
  - Upper-airway cough syndrome [Unknown]
  - Temporomandibular pain and dysfunction syndrome [Unknown]
  - Nasal ulcer [Unknown]
  - Nasal crusting [Unknown]
  - Tinnitus [Unknown]
  - Dysphonia [Unknown]
  - Dysphagia [Unknown]
  - Rash [Unknown]
  - Skin lesion [Unknown]
  - Skin hypopigmentation [Unknown]
  - Livedo reticularis [Unknown]
  - Pruritus [Unknown]
  - Increased tendency to bruise [Unknown]
  - Alopecia [Unknown]
  - Palpitations [Unknown]
  - Photosensitivity reaction [Unknown]
  - Varicose vein [Unknown]
  - Skin discolouration [Unknown]
  - Temperature intolerance [Unknown]
  - Foreign body sensation in eyes [Unknown]
  - Chest pain [Unknown]
  - Chest discomfort [Unknown]
  - Oedema [Unknown]
  - Abdominal pain [Unknown]
  - Abdominal distension [Unknown]
  - Dyspnoea [Unknown]
  - Dyspnoea exertional [Unknown]
  - Dysuria [Unknown]
  - Dyspareunia [Unknown]
  - Nocturia [Unknown]
  - Muscle spasms [Unknown]
  - Joint range of motion decreased [Unknown]
  - Back pain [Unknown]
  - Muscle swelling [Unknown]
  - Bone pain [Unknown]
  - Muscular weakness [Unknown]
  - Balance disorder [Unknown]
  - Dizziness [Unknown]
  - Hypoaesthesia [Unknown]
  - Paraesthesia [Unknown]
  - Joint noise [Unknown]
  - Tendonitis [Unknown]
  - Pulmonary mass [Unknown]
  - Sleep disorder [Unknown]
  - Migraine [Unknown]
  - Vitamin B12 deficiency [Unknown]
  - Multiple allergies [Unknown]
  - Intervertebral disc disorder [Unknown]
  - Raynaud^s phenomenon [Unknown]
  - Joint swelling [Unknown]
  - Joint stiffness [Unknown]
  - Synovitis [Unknown]
  - Grip strength decreased [Unknown]

NARRATIVE: CASE EVENT DATE: 20210201
